FAERS Safety Report 8108166-7 (Version None)
Quarter: 2011Q4

REPORT INFORMATION
  Report Type: 
  Country: None (occurrence: None)
  Receive Date: 20111223
  Receipt Date: 20110321
  Transmission Date: 20120403
  Serious: Yes (Hospitalization)
  Sender: FDA-Public Use
  Company Number: PHHY2011US23240

PATIENT
  Sex: Male

DRUGS (9)
  1. XANAX [Concomitant]
  2. VITAMINS (NO INGREDIENTS/SUBSTANCES) [Concomitant]
  3. LAMOTRIGINE [Concomitant]
  4. CITALOPRAM HYDROBROMIDE [Concomitant]
  5. CLOZARIL [Suspect]
     Dosage: 800 MG, BID
  6. ATENOLOL [Concomitant]
  7. FUROSEMIDE [Concomitant]
  8. ASPIRIN [Concomitant]
  9. OMEPRAZOLE [Concomitant]

REACTIONS (1)
  - INTESTINAL OBSTRUCTION [None]
